FAERS Safety Report 14194881 (Version 2)
Quarter: 2018Q1

REPORT INFORMATION
  Report Type: Spontaneous
  Country: FR (occurrence: FR)
  Receive Date: 20171116
  Receipt Date: 20180131
  Transmission Date: 20180508
  Serious: Yes (Other)
  Sender: FDA-Public Use
  Company Number: FR-MERCK KGAA-2034270

PATIENT
  Age: 48 Year
  Sex: Female
  Weight: 90 kg

DRUGS (2)
  1. LEVOTHYROX 125 NF [Suspect]
     Active Substance: LEVOTHYROXINE SODIUM
     Route: 048
     Dates: start: 201705, end: 201709
  2. NOVOTHYROX [Suspect]
     Active Substance: LEVOTHYROXINE SODIUM
     Indication: HYPOTHYROIDISM
     Route: 048
     Dates: start: 201705, end: 201709

REACTIONS (6)
  - Vertigo [Recovered/Resolved]
  - Fatigue [Recovered/Resolved]
  - Gastrointestinal disorder [Recovered/Resolved]
  - Blood thyroid stimulating hormone abnormal [Not Recovered/Not Resolved]
  - Pain in extremity [Recovered/Resolved]
  - Muscle spasms [Recovered/Resolved]

NARRATIVE: CASE EVENT DATE: 201706
